FAERS Safety Report 15402669 (Version 4)
Quarter: 2018Q4

REPORT INFORMATION
  Report Type: Spontaneous
  Country: JP (occurrence: JP)
  Receive Date: 20180919
  Receipt Date: 20181204
  Transmission Date: 20190204
  Serious: Yes (Hospitalization)
  Sender: FDA-Public Use
  Company Number: JP-JNJFOC-20180912421

PATIENT
  Age: 54 Year
  Sex: Male
  Weight: 58 kg

DRUGS (5)
  1. TRAZENTA [Concomitant]
     Active Substance: LINAGLIPTIN
     Indication: DIABETES MELLITUS
     Route: 048
     Dates: end: 20180905
  2. VOGLIBOSE [Concomitant]
     Active Substance: VOGLIBOSE
     Indication: DIABETES MELLITUS
     Route: 048
     Dates: end: 20180824
  3. CANAGLU [Suspect]
     Active Substance: CANAGLIFLOZIN
     Indication: DIABETES MELLITUS
     Route: 048
     Dates: start: 20180321, end: 20180906
  4. METGLUCO [Concomitant]
     Active Substance: METFORMIN HYDROCHLORIDE
     Indication: DIABETES MELLITUS
     Route: 048
  5. NATEGLINIDE. [Concomitant]
     Active Substance: NATEGLINIDE
     Indication: DIABETES MELLITUS
     Route: 048
     Dates: end: 20180905

REACTIONS (3)
  - Post procedural inflammation [Recovered/Resolved]
  - Post procedural fever [Recovering/Resolving]
  - Leg amputation [Recovered/Resolved]

NARRATIVE: CASE EVENT DATE: 20180322
